FAERS Safety Report 14582388 (Version 4)
Quarter: 2018Q4

REPORT INFORMATION
  Report Type: Other
  Country: GB (occurrence: GB)
  Receive Date: 20180228
  Receipt Date: 20181107
  Transmission Date: 20190204
  Serious: Yes (Death, Hospitalization, Other)
  Sender: FDA-Public Use
  Company Number: GB-ASPEN-GLO2017GB009399

PATIENT
  Age: 92 Year
  Sex: Male

DRUGS (3)
  1. DEXAMETHASONE. [Suspect]
     Active Substance: DEXAMETHASONE
     Indication: PROSTATE CANCER METASTATIC
     Dosage: 2 MG, QD
     Route: 065
  2. VORICONAZOLE. [Suspect]
     Active Substance: VORICONAZOLE
     Indication: FUNGAL INFECTION
     Dosage: 200 MG, BID
     Route: 048
  3. PIPERACILLIN/TAZOBACTAM [Concomitant]
     Active Substance: PIPERACILLIN SODIUM\TAZOBACTAM SODIUM
     Indication: BACTERIAL INFECTION
     Route: 042

REACTIONS (9)
  - Confusional state [Unknown]
  - Wound infection [Fatal]
  - Pneumonia [Unknown]
  - Skin swelling [Fatal]
  - Drug level increased [Unknown]
  - Scedosporium infection [Fatal]
  - Fungal skin infection [Fatal]
  - Neurotoxicity [Unknown]
  - Ecchymosis [Fatal]
